FAERS Safety Report 20571279 (Version 2)
Quarter: 2022Q2

REPORT INFORMATION
  Report Type: Other
  Country: JP (occurrence: JP)
  Receive Date: 20220309
  Receipt Date: 20220406
  Transmission Date: 20220721
  Serious: Yes (Hospitalization)
  Sender: FDA-Public Use
  Company Number: JP-CHUGAI-2022006519

PATIENT
  Age: 59 Year
  Sex: Female
  Weight: 45 kg

DRUGS (6)
  1. TOCILIZUMAB [Suspect]
     Active Substance: TOCILIZUMAB
     Indication: Takayasu^s arteritis
     Route: 058
  2. PREDNISOLONE [Concomitant]
     Active Substance: PREDNISOLONE
  3. PREDNISOLONE [Concomitant]
     Active Substance: PREDNISOLONE
  4. PREDNISOLONE [Concomitant]
     Active Substance: PREDNISOLONE
  5. MIZORIBINE [Concomitant]
     Active Substance: MIZORIBINE
     Dates: end: 20190228
  6. CYCLOSPORINE [Concomitant]
     Active Substance: CYCLOSPORINE
     Dates: end: 20190208

REACTIONS (2)
  - Colitis [Recovered/Resolved]
  - Off label use [Unknown]
